FAERS Safety Report 24599012 (Version 2)
Quarter: 2024Q4

REPORT INFORMATION
  Report Type: Spontaneous
  Country: US (occurrence: US)
  Receive Date: 20241110
  Receipt Date: 20241116
  Transmission Date: 20250114
  Serious: No
  Sender: SANOFI AVENTIS
  Company Number: US-SANOFI-02272827

PATIENT
  Age: 75 Year
  Sex: Male

DRUGS (1)
  1. DUPIXENT [Suspect]
     Active Substance: DUPILUMAB
     Indication: Chronic obstructive pulmonary disease
     Dosage: 300 MG EVERY 13 DAYS

REACTIONS (3)
  - Injection site haemorrhage [Recovering/Resolving]
  - Injury associated with device [Recovering/Resolving]
  - Inappropriate schedule of product administration [Unknown]
